FAERS Safety Report 9509295 (Version 1)
Quarter: 2013Q3

REPORT INFORMATION
  Report Type: Spontaneous
  Country: US (occurrence: US)
  Receive Date: 20130909
  Receipt Date: 20130909
  Transmission Date: 20140515
  Serious: No
  Sender: FDA-Public Use
  Company Number: US-BRISTOL-MYERS SQUIBB COMPANY-17320243

PATIENT
  Age: 53 Year
  Sex: Male
  Weight: 122.45 kg

DRUGS (4)
  1. ABILIFY [Suspect]
     Indication: BIPOLAR DISORDER
     Route: 048
  2. ATORVASTATIN [Concomitant]
  3. FENOFIBRATE [Concomitant]
  4. OMEPRAZOLE [Concomitant]

REACTIONS (3)
  - Blood glucose increased [Unknown]
  - Weight increased [Unknown]
  - Gastric disorder [Unknown]
